FAERS Safety Report 12745085 (Version 2)
Quarter: 2016Q3

REPORT INFORMATION
  Report Type: Report from Study
  Country: GB (occurrence: GB)
  Receive Date: 20160915
  Receipt Date: 20160919
  Transmission Date: 20161109
  Serious: Yes (Death)
  Sender: FDA-Public Use
  Company Number: GB-ROCHE-1829402

PATIENT

DRUGS (1)
  1. PIRFENIDONE [Suspect]
     Active Substance: PIRFENIDONE
     Indication: IDIOPATHIC PULMONARY FIBROSIS
     Dosage: A DOSE OF 3 X 267 MG CAPSULES THREE TIMES DAILY (TOTAL 2403 MG/DAY) AS TOLERATED.
     Route: 048

REACTIONS (19)
  - Lethargy [Unknown]
  - Mood altered [Unknown]
  - Idiopathic pulmonary fibrosis [Unknown]
  - Weight decreased [Unknown]
  - Rash [Unknown]
  - Death [Fatal]
  - Abdominal discomfort [Unknown]
  - Constipation [Unknown]
  - Headache [Unknown]
  - Lower respiratory tract infection [Unknown]
  - Gastrooesophageal reflux disease [Unknown]
  - Insomnia [Unknown]
  - Diarrhoea [Unknown]
  - Liver function test abnormal [Unknown]
  - Right ventricular failure [Unknown]
  - Decreased appetite [Unknown]
  - Nausea [Unknown]
  - Vomiting [Unknown]
  - Dizziness [Unknown]
